FAERS Safety Report 13683451 (Version 1)
Quarter: 2017Q2

REPORT INFORMATION
  Report Type: Report from Study
  Country: None (occurrence: DE)
  Receive Date: 20170623
  Receipt Date: 20170623
  Transmission Date: 20170830
  Serious: Yes (Hospitalization, Other)
  Sender: FDA-Public Use
  Company Number: DE-ABBVIE-17K-062-2013991-00

PATIENT
  Age: 70 Year
  Sex: Female

DRUGS (4)
  1. P-STA [Concomitant]
     Indication: PRODUCT USED FOR UNKNOWN INDICATION
  2. TO-EX [Concomitant]
     Indication: PRODUCT USED FOR UNKNOWN INDICATION
  3. HUMIRA [Suspect]
     Active Substance: ADALIMUMAB
     Indication: PSORIATIC ARTHROPATHY
     Route: 058
     Dates: start: 20170105, end: 20170504
  4. HUMIRA [Suspect]
     Active Substance: ADALIMUMAB
     Route: 058
     Dates: start: 20170608

REACTIONS (9)
  - Constipation [Recovered/Resolved]
  - Gastritis [Recovered/Resolved]
  - Weight increased [Not Recovered/Not Resolved]
  - Viral upper respiratory tract infection [Recovered/Resolved]
  - Pyrexia [Recovered/Resolved]
  - Headache [Recovered/Resolved]
  - Inflammatory marker increased [Recovered/Resolved]
  - Waist circumference increased [Not Recovered/Not Resolved]
  - Rhinitis [Recovered/Resolved]

NARRATIVE: CASE EVENT DATE: 201705
